FAERS Safety Report 4780380-8 (Version None)
Quarter: 2005Q3

REPORT INFORMATION
  Report Type: 
  Country: None (occurrence: None)
  Receive Date: 20050926
  Receipt Date: 20050916
  Transmission Date: 20060218
  Serious: Yes (Hospitalization, Other)
  Sender: FDA-Public Use
  Company Number: 2005-09-0965

PATIENT
  Age: 45 Year
  Sex: Female

DRUGS (7)
  1. CELESTONE [Suspect]
     Indication: SYSTEMIC LUPUS ERYTHEMATOSUS
     Dosage: 1.5 MG/DAY ORAL
     Route: 048
     Dates: start: 19860101
  2. ENDOXAN INJECTABLE [Suspect]
     Indication: SYSTEMIC LUPUS ERYTHEMATOSUS
     Dosage: 500 MG INTRAVENOUS
     Route: 042
     Dates: start: 19950814, end: 20000511
  3. KOLANTYL [Concomitant]
  4. BASEN [Concomitant]
  5. LASIX [Concomitant]
  6. PRAVASTATIN [Concomitant]
  7. NIVADIL (NILVADIPINE) [Concomitant]

REACTIONS (2)
  - CELLULITIS [None]
  - INFECTED SKIN ULCER [None]
